FAERS Safety Report 14449530 (Version 1)
Quarter: 2018Q1

REPORT INFORMATION
  Report Type: Spontaneous
  Country: DE (occurrence: DE)
  Receive Date: 20180127
  Receipt Date: 20180127
  Transmission Date: 20180509
  Serious: Yes (Other)
  Sender: FDA-Public Use
  Company Number: DE-AMGEN-DEUSP2018007766

PATIENT
  Age: 69 Year
  Sex: Female

DRUGS (1)
  1. XGEVA [Suspect]
     Active Substance: DENOSUMAB
     Indication: METASTASES TO SPINE
     Dosage: UNK
     Route: 065
     Dates: start: 201708

REACTIONS (7)
  - Hypoaesthesia [Unknown]
  - Dyspnoea [Unknown]
  - Sleep disorder due to a general medical condition [Unknown]
  - Asthenia [Unknown]
  - Pain [Unknown]
  - Erythema [Unknown]
  - Bone pain [Unknown]

NARRATIVE: CASE EVENT DATE: 201708
